FAERS Safety Report 6767454-7 (Version None)
Quarter: 2010Q2

REPORT INFORMATION
  Report Type: 
  Country: None (occurrence: None)
  Receive Date: 20100611
  Receipt Date: 20100611
  Transmission Date: 20101027
  Serious: No
  Sender: FDA-Public Use
  Company Number: None

PATIENT
  Age: 34 Year
  Sex: Female
  Weight: 124.7392 kg

DRUGS (1)
  1. KETOROLAC TROMETHAMINE [Suspect]
     Dosage: 4 UNITS

REACTIONS (6)
  - ARTHRALGIA [None]
  - INJECTION SITE DISCOLOURATION [None]
  - INJECTION SITE INDURATION [None]
  - INJECTION SITE PAIN [None]
  - JOINT SWELLING [None]
  - MASS [None]
